FAERS Safety Report 11635782 (Version 1)
Quarter: 2015Q4

REPORT INFORMATION
  Report Type: Spontaneous
  Country: US (occurrence: US)
  Receive Date: 20151016
  Receipt Date: 20151016
  Transmission Date: 20160304
  Serious: No
  Sender: FDA-Public Use
  Company Number: US-PFIZER INC-2015332598

PATIENT
  Age: 16 Year
  Sex: Female
  Weight: 68 kg

DRUGS (2)
  1. ALBUTEROL. [Concomitant]
     Active Substance: ALBUTEROL
     Indication: ASTHMA
     Dosage: ONCE OR TWICE A YEAR
  2. ADVIL [Suspect]
     Active Substance: IBUPROFEN
     Indication: HEADACHE
     Dosage: 400 MG, UNK, TWO 200MG TABLETS
     Route: 048
     Dates: end: 20150925

REACTIONS (2)
  - Chest pain [Recovered/Resolved]
  - Sensation of foreign body [Recovered/Resolved]
